FAERS Safety Report 4820445-5 (Version None)
Quarter: 2005Q4

REPORT INFORMATION
  Report Type: 
  Country: None (occurrence: None)
  Receive Date: 20051014
  Receipt Date: 20050908
  Transmission Date: 20060501
  Serious: No
  Sender: FDA-Public Use
  Company Number: 2005SP002722

PATIENT
  Age: 80 Year
  Sex: Male
  Weight: 63.5036 kg

DRUGS (6)
  1. LUNESTA [Suspect]
     Dosage: 2 MG;HS;ORAL
     Route: 048
     Dates: start: 20050904
  2. TYLENOL W/ CODEINE [Concomitant]
  3. WARFARIN [Concomitant]
  4. LISINOPRIL [Concomitant]
  5. DIGOXIN [Concomitant]
  6. PENTOXIFYLLINE [Concomitant]

REACTIONS (2)
  - DRUG INEFFECTIVE [None]
  - INITIAL INSOMNIA [None]
